FAERS Safety Report 22284691 (Version 2)
Quarter: 2023Q2

REPORT INFORMATION
  Report Type: Spontaneous
  Country: US (occurrence: US)
  Receive Date: 20230504
  Receipt Date: 20230629
  Transmission Date: 20230722
  Serious: No
  Sender: FDA-Public Use
  Company Number: US-PFIZER INC-PV202300079902

PATIENT
  Age: 75 Year
  Sex: Female
  Weight: 56.236 kg

DRUGS (3)
  1. IBRANCE [Suspect]
     Active Substance: PALBOCICLIB
     Indication: Breast cancer metastatic
     Dosage: 125 MG, DAILY
     Route: 048
     Dates: start: 2022, end: 202211
  2. IBRANCE [Suspect]
     Active Substance: PALBOCICLIB
     Indication: Metastases to lung
  3. IBRANCE [Suspect]
     Active Substance: PALBOCICLIB
     Indication: Metastases to pleura

REACTIONS (1)
  - Neoplasm progression [Unknown]
